FAERS Safety Report 9980276 (Version 1)
Quarter: 2014Q1

REPORT INFORMATION
  Report Type: Report from Study
  Country: US (occurrence: US)
  Receive Date: 20140307
  Receipt Date: 20140307
  Transmission Date: 20141002
  Serious: No
  Sender: FDA-Public Use
  Company Number: US-ABBVIE-13P-163-1175929-00

PATIENT
  Sex: Female

DRUGS (12)
  1. HUMIRA [Suspect]
     Indication: RHEUMATOID ARTHRITIS
     Dates: start: 2006
  2. HUMIRA [Suspect]
     Dates: end: 201001
  3. HUMIRA [Suspect]
     Dates: start: 2013
  4. HUMIRA [Suspect]
     Indication: RHEUMATOID ARTHRITIS
  5. OPANA [Concomitant]
     Indication: PAIN
     Dosage: TWO PILLS
  6. ALLOPURINOL [Concomitant]
     Indication: PRODUCT USED FOR UNKNOWN INDICATION
  7. LISINOPRIL W/HYDROCHLOROTHIAZIDE [Concomitant]
     Indication: PRODUCT USED FOR UNKNOWN INDICATION
  8. SYNTHROID [Concomitant]
     Indication: PRODUCT USED FOR UNKNOWN INDICATION
  9. LYRICA [Concomitant]
     Indication: PRODUCT USED FOR UNKNOWN INDICATION
  10. VITAMIN D [Concomitant]
     Indication: PRODUCT USED FOR UNKNOWN INDICATION
  11. HECTOROL [Concomitant]
     Indication: PRODUCT USED FOR UNKNOWN INDICATION
  12. NEXIUM [Concomitant]
     Indication: PRODUCT USED FOR UNKNOWN INDICATION

REACTIONS (3)
  - Malaise [Recovering/Resolving]
  - Injection site pain [Not Recovered/Not Resolved]
  - Arthralgia [Recovering/Resolving]
